FAERS Safety Report 4888266-5 (Version None)
Quarter: 2006Q1

REPORT INFORMATION
  Report Type: 
  Country: None (occurrence: None)
  Receive Date: 20060119
  Receipt Date: 20060119
  Transmission Date: 20060701
  Serious: No
  Sender: FDA-Public Use
  Company Number: None

PATIENT
  Sex: Female
  Weight: 123.832 kg

DRUGS (1)
  1. METFORMIN [Suspect]
     Indication: DIABETES MELLITUS
     Dosage: 500 MG TWO BID PO
     Route: 048

REACTIONS (5)
  - ANOREXIA [None]
  - HEADACHE [None]
  - NAUSEA [None]
  - TREMOR [None]
  - VOMITING [None]
